FAERS Safety Report 23634746 (Version 4)
Quarter: 2024Q2

REPORT INFORMATION
  Report Type: Report from Study
  Country: US (occurrence: US)
  Receive Date: 20240315
  Receipt Date: 20240517
  Transmission Date: 20240716
  Serious: Yes (Other)
  Sender: FDA-Public Use
  Company Number: US-002147023-NVSC2023US255042

PATIENT
  Age: 51 Year
  Sex: Female

DRUGS (1)
  1. KESIMPTA [Suspect]
     Active Substance: OFATUMUMAB
     Indication: Multiple sclerosis
     Dosage: 20 MG, QW
     Route: 058
     Dates: start: 20231128

REACTIONS (9)
  - Lower respiratory tract infection [Unknown]
  - Lower respiratory tract congestion [Recovering/Resolving]
  - Injection site haemorrhage [Unknown]
  - Influenza like illness [Unknown]
  - Respiratory tract congestion [Unknown]
  - Fatigue [Unknown]
  - Pain [Unknown]
  - Illness [Unknown]
  - Device defective [Unknown]

NARRATIVE: CASE EVENT DATE: 20240101
